FAERS Safety Report 10025947 (Version 1)
Quarter: 2014Q1

REPORT INFORMATION
  Report Type: Spontaneous
  Country: US (occurrence: US)
  Receive Date: 20140320
  Receipt Date: 20140320
  Transmission Date: 20141002
  Serious: No
  Sender: FDA-Public Use
  Company Number: US-009507513-1403USA008408

PATIENT
  Age: 76 Year
  Sex: Female

DRUGS (2)
  1. JANUVIA [Suspect]
     Indication: BLOOD GLUCOSE
     Dosage: 100 MG, QD
     Route: 048
     Dates: start: 20130221
  2. GLIPIZIDE [Concomitant]
     Dosage: 10 MG, QD

REACTIONS (2)
  - Medication residue present [Recovering/Resolving]
  - Diarrhoea [Recovering/Resolving]
